FAERS Safety Report 8231375-3 (Version None)
Quarter: 2012Q1

REPORT INFORMATION
  Report Type: 
  Country: None (occurrence: None)
  Receive Date: 20120323
  Receipt Date: 20120315
  Transmission Date: 20120608
  Serious: Yes (Other)
  Sender: FDA-Public Use
  Company Number: US-BAYER-2012-028372

PATIENT
  Age: 82 Year
  Sex: Female
  Weight: 89.81 kg

DRUGS (9)
  1. ASPIRIN [Suspect]
  2. AMIODARONE HYDROCHLORIDE [Concomitant]
  3. COREG [Concomitant]
  4. LEXAPRO [Concomitant]
  5. LASIX [Concomitant]
  6. PRILOSEC [Concomitant]
  7. VITAMIN D [Concomitant]
  8. XARELTO [Interacting]
     Indication: ATRIAL FIBRILLATION
     Dosage: 20 MG, UNK
     Route: 048
     Dates: start: 20120227
  9. SIMVASTATIN [Concomitant]

REACTIONS (2)
  - FAECES DISCOLOURED [None]
  - ABDOMINAL PAIN [None]
